FAERS Safety Report 10055656 (Version 1)
Quarter: 2014Q2

REPORT INFORMATION
  Report Type: Spontaneous
  Country: US (occurrence: None)
  Receive Date: 20140402
  Receipt Date: 20140402
  Transmission Date: 20141212
  Serious: Yes (Other)
  Sender: FDA-Public Use
  Company Number: None

PATIENT
  Age: 52 Year
  Sex: Male
  Weight: 77.11 kg

DRUGS (2)
  1. LEVOFLOXACIN [Suspect]
     Indication: EPIDIDYMITIS
     Dosage: 1, ONCE DAILY, TAKEN BY MOUTH
     Route: 048
     Dates: start: 20140107, end: 20140113
  2. LEVOFLOXACIN [Suspect]
     Indication: MUSCLE STRAIN
     Dosage: 1, ONCE DAILY, TAKEN BY MOUTH
     Route: 048
     Dates: start: 20140107, end: 20140113

REACTIONS (2)
  - Vision blurred [None]
  - Optic ischaemic neuropathy [None]
